FAERS Safety Report 20773469 (Version 2)
Quarter: 2022Q4

REPORT INFORMATION
  Report Type: Report from Study
  Country: GB (occurrence: GB)
  Receive Date: 20220502
  Receipt Date: 20221212
  Transmission Date: 20230112
  Serious: Yes (Death, Hospitalization, Other)
  Sender: FDA-Public Use
  Company Number: None

PATIENT
  Age: 74 Year
  Sex: Male

DRUGS (99)
  1. REVLIMID [Suspect]
     Active Substance: LENALIDOMIDE
     Indication: Plasma cell myeloma
     Dosage: 25 MG, QD
     Dates: start: 20181210, end: 20181231
  2. REVLIMID [Suspect]
     Active Substance: LENALIDOMIDE
     Dosage: 25 MG, QD
     Route: 048
     Dates: start: 20181015, end: 20181104
  3. REVLIMID [Suspect]
     Active Substance: LENALIDOMIDE
     Dosage: 25 MG, QD (25 MILLIGRAM)
     Route: 048
     Dates: start: 20190906, end: 20191010
  4. REVLIMID [Suspect]
     Active Substance: LENALIDOMIDE
     Dosage: 25 MG, QD
     Route: 048
     Dates: start: 20190712, end: 20190801
  5. REVLIMID [Suspect]
     Active Substance: LENALIDOMIDE
     Dosage: 25 MG, QD
     Route: 048
     Dates: start: 20190809, end: 20190829
  6. REVLIMID [Suspect]
     Active Substance: LENALIDOMIDE
     Dosage: 25 MG, QD
     Route: 048
     Dates: start: 20191112, end: 20191202
  7. REVLIMID [Suspect]
     Active Substance: LENALIDOMIDE
     Dosage: 25 MG, QD
     Route: 048
     Dates: start: 20181112, end: 20181202
  8. REVLIMID [Suspect]
     Active Substance: LENALIDOMIDE
     Dosage: 25 MG, QD (25 MILLIGRAM)
     Route: 048
     Dates: start: 20190614, end: 20190704
  9. REVLIMID [Suspect]
     Active Substance: LENALIDOMIDE
     Dosage: 25 MG, QD
     Route: 048
     Dates: start: 20191210
  10. REVLIMID [Suspect]
     Active Substance: LENALIDOMIDE
     Dosage: 25 MG, QD
     Dates: start: 20180821, end: 20180909
  11. REVLIMID [Suspect]
     Active Substance: LENALIDOMIDE
     Dosage: 25 MG, QD
     Route: 048
     Dates: start: 20180917, end: 20181007
  12. REVLIMID [Suspect]
     Active Substance: LENALIDOMIDE
     Dosage: 25 MG, QD
     Route: 048
     Dates: start: 20190906, end: 20191231
  13. REVLIMID [Suspect]
     Active Substance: LENALIDOMIDE
     Dosage: 25 MG, QD
     Route: 048
     Dates: start: 20190906, end: 20191010
  14. REVLIMID [Suspect]
     Active Substance: LENALIDOMIDE
     Dosage: 25 MG, QD
     Route: 048
     Dates: start: 20191213, end: 20191231
  15. DEXAMETHASONE [Suspect]
     Active Substance: DEXAMETHASONE
     Indication: Plasma cell myeloma
     Dosage: UNK
     Route: 048
  16. DEXAMETHASONE [Suspect]
     Active Substance: DEXAMETHASONE
     Dosage: 20 MG, QW
     Route: 048
     Dates: start: 20190614, end: 20190830
  17. DEXAMETHASONE [Suspect]
     Active Substance: DEXAMETHASONE
     Dosage: 20 MG, QW
     Route: 048
     Dates: start: 20190906, end: 20191010
  18. DEXAMETHASONE [Suspect]
     Active Substance: DEXAMETHASONE
     Dosage: 20 MG, QD
     Route: 048
     Dates: start: 20190906, end: 20191228
  19. DEXAMETHASONE [Suspect]
     Active Substance: DEXAMETHASONE
     Dosage: 20 MG, QW
     Route: 048
     Dates: start: 20191213, end: 20191228
  20. DEXAMETHASONE [Suspect]
     Active Substance: DEXAMETHASONE
     Dosage: 20 MG, QW
     Route: 048
     Dates: start: 20180821, end: 20190101
  21. IXAZOMIB [Suspect]
     Active Substance: IXAZOMIB
     Indication: Plasma cell myeloma
     Dosage: 4 MG, QW
     Route: 048
     Dates: start: 20190810, end: 20190824
  22. IXAZOMIB [Suspect]
     Active Substance: IXAZOMIB
     Dosage: 4 MG, QW
     Route: 048
     Dates: start: 20190615, end: 20190615
  23. IXAZOMIB [Suspect]
     Active Substance: IXAZOMIB
     Dosage: 4 MG, QW
     Route: 048
     Dates: start: 20190629, end: 20190713
  24. IXAZOMIB [Suspect]
     Active Substance: IXAZOMIB
     Dosage: 4 MILLIGRAM
     Route: 048
     Dates: start: 20191213, end: 20191226
  25. IXAZOMIB [Suspect]
     Active Substance: IXAZOMIB
     Dosage: 4 MG, QW
     Route: 048
     Dates: start: 20190620, end: 20190802
  26. IXAZOMIB [Suspect]
     Active Substance: IXAZOMIB
     Dosage: 4 MG, QW
     Route: 048
     Dates: start: 20190615, end: 20190622
  27. IXAZOMIB [Suspect]
     Active Substance: IXAZOMIB
     Dosage: 4 MG, QW
     Route: 048
     Dates: start: 20190803, end: 20190809
  28. MEGACE [Concomitant]
     Active Substance: MEGESTROL ACETATE
     Indication: Malnutrition
     Dosage: 15 ML, QD
     Route: 048
     Dates: start: 20191011
  29. ZINC SULFATE [Concomitant]
     Active Substance: ZINC SULFATE
     Indication: Malnutrition
     Dosage: UNK, QD, (UNK, BID)
     Route: 048
     Dates: start: 20190103, end: 20191011
  30. INFLUENZA VIRUS VACCINE [Concomitant]
     Active Substance: INFLUENZA VIRUS VACCINE
     Indication: Prophylaxis
     Dosage: 1 DF, QD (1 AMPULE)
     Dates: start: 20191112, end: 20191112
  31. FOLIC ACID [Concomitant]
     Active Substance: FOLIC ACID
     Indication: Anaemia
     Dosage: 5 MILLIGRAM
     Route: 048
  32. CARBOHYDRATES\FATTY ACIDS\MINERALS\PROTEIN\VITAMINS [Concomitant]
     Active Substance: CARBOHYDRATES\FATTY ACIDS\MINERALS\PROTEIN\VITAMINS
     Indication: Malnutrition
     Dosage: 2 UNK, QD
     Route: 048
     Dates: start: 20190103, end: 20191011
  33. CARBOHYDRATES\FATTY ACIDS\MINERALS\PROTEIN\VITAMINS [Concomitant]
     Active Substance: CARBOHYDRATES\FATTY ACIDS\MINERALS\PROTEIN\VITAMINS
     Dosage: 2 OT, QD
     Route: 048
     Dates: start: 20190102, end: 20191029
  34. CARBOHYDRATES\FATTY ACIDS\MINERALS\PROTEIN\VITAMINS [Concomitant]
     Active Substance: CARBOHYDRATES\FATTY ACIDS\MINERALS\PROTEIN\VITAMINS
     Dosage: 2 UNK, QD
     Route: 048
     Dates: start: 20190103, end: 20191011
  35. METOPROLOL [Concomitant]
     Active Substance: METOPROLOL
     Indication: Hypertension
     Dosage: 50 MG, QD
     Route: 048
  36. TRIMETHOPRIM [Concomitant]
     Active Substance: TRIMETHOPRIM
     Indication: Antifungal prophylaxis
     Dates: start: 20191011
  37. TRIMETHOPRIM [Concomitant]
     Active Substance: TRIMETHOPRIM
     Indication: Prophylaxis
     Dates: start: 20191011
  38. TRIMETHOPRIM [Concomitant]
     Active Substance: TRIMETHOPRIM
     Dosage: 480 MG, QD
     Route: 048
  39. TRIMETHOPRIM [Concomitant]
     Active Substance: TRIMETHOPRIM
     Dosage: 10 ML
     Route: 048
     Dates: start: 20191011
  40. TRIMETHOPRIM [Concomitant]
     Active Substance: TRIMETHOPRIM
     Dosage: 20 ML, QD
     Route: 048
     Dates: start: 20190102, end: 20191015
  41. CUPRIC SULFATE ANHYDROUS [Concomitant]
     Active Substance: CUPRIC SULFATE ANHYDROUS
     Indication: Malnutrition
     Dosage: 1 DOSAGE FORM, QD
     Route: 048
     Dates: start: 20190103, end: 20191011
  42. CUPRIC SULFATE ANHYDROUS [Concomitant]
     Active Substance: CUPRIC SULFATE ANHYDROUS
     Dosage: UNK
  43. CUPRIC SULFATE ANHYDROUS [Concomitant]
     Active Substance: CUPRIC SULFATE ANHYDROUS
     Dosage: UNK, BID
     Route: 048
     Dates: start: 20190103, end: 20191011
  44. MANGANESE SULFATE [Concomitant]
     Active Substance: MANGANESE SULFATE
     Indication: Malnutrition
     Dosage: UNK UNK, QD, (UNK UNK, BID)
     Route: 048
     Dates: start: 20190103, end: 20191011
  45. LIDOCAINE [Concomitant]
     Active Substance: LIDOCAINE
     Indication: Tongue coated
     Dosage: 30 ML, QD, (10 MILLILITER, TID)
     Route: 048
     Dates: start: 20191116, end: 20191220
  46. LIDOCAINE [Concomitant]
     Active Substance: LIDOCAINE
     Dosage: UNK UNK, QD
     Route: 048
     Dates: start: 20190103, end: 20191011
  47. LIDOCAINE [Concomitant]
     Active Substance: LIDOCAINE
     Dosage: 90 ML, QD, (30 MILLILITER, TID)
     Route: 048
     Dates: start: 20191116, end: 20191220
  48. VALACYCLOVIR HYDROCHLORIDE [Concomitant]
     Active Substance: VALACYCLOVIR HYDROCHLORIDE
     Indication: Prophylaxis
     Dosage: 500 MG, QD
     Route: 048
     Dates: start: 20190817
  49. VITAMINS [Concomitant]
     Active Substance: VITAMINS
     Indication: Prophylaxis
     Dosage: 1 DF, QD
     Route: 048
     Dates: start: 20190104
  50. ASPIRIN [Concomitant]
     Active Substance: ASPIRIN
     Indication: Prophylaxis
     Dosage: 75 MG, QD
     Route: 048
  51. MAGNESIUM OXIDE [Concomitant]
     Active Substance: MAGNESIUM OXIDE
     Indication: Malnutrition
     Dosage: UNK
  52. MAGNESIUM OXIDE [Concomitant]
     Active Substance: MAGNESIUM OXIDE
     Dosage: UNK, QD, (UNK UNK, BID)
     Route: 048
     Dates: start: 20190103, end: 20191011
  53. MAGNESIUM OXIDE [Concomitant]
     Active Substance: MAGNESIUM OXIDE
     Dosage: UNK UNK, QD
     Route: 048
     Dates: start: 20190103, end: 20191011
  54. PANTOPRAZOLE [Concomitant]
     Active Substance: PANTOPRAZOLE
     Indication: Prophylaxis
     Dosage: 20 MG, QD
     Route: 048
     Dates: start: 20190102, end: 20191015
  55. PANTOPRAZOLE [Concomitant]
     Active Substance: PANTOPRAZOLE
     Dosage: 80 MG, QD
     Route: 048
     Dates: start: 20191016
  56. FORTICAL [Concomitant]
     Active Substance: CALCITONIN SALMON
     Indication: Product used for unknown indication
  57. VITAMINS NOS [Concomitant]
     Active Substance: VITAMINS
     Indication: Prophylaxis
     Dosage: UNK UNK, QD
     Dates: start: 20190102, end: 20190129
  58. VITAMINS NOS [Concomitant]
     Active Substance: VITAMINS
     Indication: Malnutrition
     Dosage: UNK UNK, QD
     Route: 048
     Dates: start: 20190103, end: 20191111
  59. VITAMINS NOS [Concomitant]
     Active Substance: VITAMINS
     Dosage: UNK UNK, QD
     Route: 048
     Dates: start: 20190104
  60. VITAMINS NOS [Concomitant]
     Active Substance: VITAMINS
     Dosage: 1 DOSAGE FORM, QD
     Route: 048
     Dates: start: 20190103, end: 20191011
  61. ZOLEDRONIC ACID [Concomitant]
     Active Substance: ZOLEDRONIC ACID
     Indication: Prophylaxis
     Dosage: 4 MG, QMO
     Route: 041
     Dates: start: 20181106
  62. SULFAMETHOXAZOLE\TRIMETHOPRIM [Concomitant]
     Active Substance: SULFAMETHOXAZOLE\TRIMETHOPRIM
     Indication: Prophylaxis
     Dosage: 10 ML, QD (LIQUID)
     Route: 048
     Dates: start: 20191011
  63. CHLORHEXIDINE [Concomitant]
     Active Substance: CHLORHEXIDINE
     Indication: Tongue coated
     Dosage: 30 ML, QD (30 MILLILITER)
     Route: 048
     Dates: start: 20191116, end: 20191220
  64. VITAMIN D NOS [Concomitant]
     Active Substance: VITAMIN D NOS
     Indication: Malnutrition
     Dosage: UNK, BID
     Route: 048
     Dates: start: 20190103, end: 20191011
  65. VITAMIN D NOS [Concomitant]
     Active Substance: VITAMIN D NOS
     Dosage: UNK
     Dates: start: 20190103, end: 20191011
  66. VITAMIN D NOS [Concomitant]
     Active Substance: VITAMIN D NOS
     Dosage: UNK, QD, (UNK, BID)
     Route: 048
     Dates: start: 20190102, end: 20190129
  67. VITAMIN D NOS [Concomitant]
     Active Substance: VITAMIN D NOS
     Dosage: UNK, QD
     Dates: start: 20190102, end: 20190129
  68. VITAMIN D NOS [Concomitant]
     Active Substance: VITAMIN D NOS
     Dosage: UNK UNK, QD, (UNK UNK, BID)
     Dates: start: 20190103, end: 20191011
  69. VITAMIN D NOS [Concomitant]
     Active Substance: VITAMIN D NOS
     Dosage: UNK, QD
     Route: 048
     Dates: start: 20190102, end: 20190129
  70. DIETARY SUPPLEMENT [Concomitant]
     Active Substance: DIETARY SUPPLEMENT
     Indication: Malnutrition
     Dosage: 1 OT, QD (1 CARTON)
     Route: 048
     Dates: start: 20190102, end: 20191029
  71. COTRIMOXAZOLE [Concomitant]
     Active Substance: SULFAMETHOXAZOLE\TRIMETHOPRIM
     Indication: Antifungal prophylaxis
     Dosage: 480 MG, QD
     Route: 048
     Dates: start: 20180817, end: 20191015
  72. ZOLPIDEM [Concomitant]
     Active Substance: ZOLPIDEM TARTRATE
     Indication: Prophylaxis
     Dosage: 10 MG
     Route: 048
     Dates: start: 20180816, end: 20191029
  73. TINZAPARIN [Concomitant]
     Active Substance: TINZAPARIN
     Indication: Prophylaxis
     Dosage: 10000 IU (INTERNATIONAL UNIT)
     Route: 058
     Dates: start: 20190110
  74. MAGNESIUM SULFATE [Concomitant]
     Active Substance: MAGNESIUM SULFATE
     Indication: Product used for unknown indication
     Dosage: UNK
  75. CALCIUM\CHOLECALCIFEROL [Concomitant]
     Active Substance: CALCIUM\CHOLECALCIFEROL
     Indication: Prophylaxis
     Dosage: 2 TABLET
     Route: 048
     Dates: start: 20191016, end: 20191029
  76. CALCIUM\CHOLECALCIFEROL [Concomitant]
     Active Substance: CALCIUM\CHOLECALCIFEROL
     Indication: Bone disorder
     Dosage: 6 DF, QD
     Route: 048
     Dates: start: 20190103, end: 20190211
  77. CALCIUM\CHOLECALCIFEROL [Concomitant]
     Active Substance: CALCIUM\CHOLECALCIFEROL
     Dosage: 4 DF, QD (2 TABLET, 2 DF, BID)
     Route: 048
     Dates: start: 20190212, end: 20191015
  78. SODIUM FLUORIDE [Concomitant]
     Active Substance: SODIUM FLUORIDE
     Indication: Malnutrition
     Dosage: 90 ML, QD
     Route: 048
     Dates: start: 20190103
  79. MYCOSTATIN [Concomitant]
     Active Substance: NYSTATIN
     Indication: Tongue coated
     Dosage: 3 ML, QD
     Route: 048
     Dates: start: 20191116, end: 20191220
  80. MYCOSTATIN [Concomitant]
     Active Substance: NYSTATIN
     Dates: start: 20190104
  81. CYCLOPHOSPHAMIDE [Concomitant]
     Active Substance: CYCLOPHOSPHAMIDE
     Indication: Plasma cell myeloma
     Dosage: 36.59 MG
     Dates: end: 2019
  82. CYCLOPHOSPHAMIDE [Concomitant]
     Active Substance: CYCLOPHOSPHAMIDE
     Dosage: 300 MG, QD
     Route: 048
     Dates: start: 20190907, end: 20190907
  83. CYCLOPHOSPHAMIDE [Concomitant]
     Active Substance: CYCLOPHOSPHAMIDE
     Dosage: 7800 MG
     Dates: start: 20191213
  84. CYCLOPHOSPHAMIDE [Concomitant]
     Active Substance: CYCLOPHOSPHAMIDE
     Dosage: 7800 MG
     Dates: start: 2019, end: 20191213
  85. CYCLOPHOSPHAMIDE [Concomitant]
     Active Substance: CYCLOPHOSPHAMIDE
     Dosage: 300 MG, QD
     Route: 048
     Dates: start: 20191010
  86. CYCLOPHOSPHAMIDE [Concomitant]
     Active Substance: CYCLOPHOSPHAMIDE
     Dosage: 300 MG, QD
     Route: 048
     Dates: start: 20190907, end: 20191010
  87. CYCLOPHOSPHAMIDE [Concomitant]
     Active Substance: CYCLOPHOSPHAMIDE
     Dosage: 300 MG, QD
     Route: 048
     Dates: start: 20191213
  88. CYCLOPHOSPHAMIDE [Concomitant]
     Active Substance: CYCLOPHOSPHAMIDE
     Dosage: 36.59 MG
     Dates: end: 20191213
  89. CYCLOPHOSPHAMIDE [Concomitant]
     Active Substance: CYCLOPHOSPHAMIDE
     Dosage: 300 MG, QD
     Route: 048
     Dates: end: 2019
  90. CYCLOPHOSPHAMIDE [Concomitant]
     Active Substance: CYCLOPHOSPHAMIDE
     Dosage: 11100 MG
     Dates: start: 20191213
  91. CYCLOPHOSPHAMIDE [Concomitant]
     Active Substance: CYCLOPHOSPHAMIDE
     Dosage: 4 MG, QW
     Route: 048
     Dates: start: 20191213, end: 20191226
  92. CYCLOPHOSPHAMIDE [Concomitant]
     Active Substance: CYCLOPHOSPHAMIDE
     Dosage: 300 MG, QD
     Route: 048
     Dates: start: 2019
  93. CYCLOPHOSPHAMIDE [Concomitant]
     Active Substance: CYCLOPHOSPHAMIDE
     Dosage: 300 MG, QD
     Route: 048
  94. CYCLOPHOSPHAMIDE [Concomitant]
     Active Substance: CYCLOPHOSPHAMIDE
     Dosage: UNK
     Dates: start: 2019, end: 20191213
  95. CYCLOPHOSPHAMIDE [Concomitant]
     Active Substance: CYCLOPHOSPHAMIDE
     Dosage: 300 MG, QW
     Route: 048
     Dates: start: 20191213, end: 20191228
  96. AMLODIPINE [Concomitant]
     Active Substance: AMLODIPINE BESYLATE
     Indication: Hypertension
     Dosage: 10 MG, QD
     Route: 048
     Dates: end: 20191204
  97. BUDESONIDE [Concomitant]
     Active Substance: BUDESONIDE
     Indication: Chronic obstructive pulmonary disease
     Dosage: 1 MG, QD
     Route: 048
     Dates: start: 20200107
  98. GONADORELIN [Concomitant]
     Active Substance: GONADORELIN
     Indication: Prostate cancer
     Dosage: 45 MG, Q12MO
     Dates: start: 20190515
  99. CALCITONIN [Concomitant]
     Active Substance: CALCITONIN
     Indication: Malnutrition
     Dosage: UNK, QD
     Route: 048
     Dates: start: 20190130, end: 20191011

REACTIONS (4)
  - Respiratory tract infection [Fatal]
  - Respiratory tract infection bacterial [Fatal]
  - Thrombocytopenia [Fatal]
  - Respiratory tract infection viral [Fatal]

NARRATIVE: CASE EVENT DATE: 20191002
